FAERS Safety Report 8859273 (Version 1)
Quarter: 2012Q4

REPORT INFORMATION
  Report Type: 
  Country: US (occurrence: US)
  Receive Date: 20121024
  Receipt Date: 20121024
  Transmission Date: 20130627
  Serious: Yes (Other)
  Sender: FDA-Public Use
  Company Number: US-ROCHE-1130045

PATIENT
  Sex: Female
  Weight: 55 kg

DRUGS (3)
  1. HERCEPTIN [Suspect]
     Indication: BREAST CANCER METASTATIC
     Route: 042
  2. HERCEPTIN [Suspect]
     Route: 042
  3. XELODA [Suspect]
     Indication: BREAST CANCER METASTATIC
     Route: 065

REACTIONS (6)
  - Anaemia [Unknown]
  - Pleural effusion [Unknown]
  - Muscular weakness [Unknown]
  - Pruritus [Unknown]
  - Skin papilloma [Unknown]
  - Hepatic enzyme increased [Unknown]
